FAERS Safety Report 9516344 (Version 1)
Quarter: 2013Q1

REPORT INFORMATION
  Report Type: Spontaneous
  Country: US (occurrence: None)
  Receive Date: 20130305
  Receipt Date: 20130305
  Transmission Date: 20140127
  Serious: Yes (Other)
  Sender: FDA-Public Use
  Company Number: 163-21880-12081298

PATIENT
  Sex: Female

DRUGS (4)
  1. REVLIMID (LENALIDOMIDE) (25 MILLIGRAM, CAPSULES) [Suspect]
     Indication: PLASMA CELL MYELOMA
     Dosage: 21 IN 21 D
     Route: 048
     Dates: start: 20120622
  2. MULTIVITAMINS [Concomitant]
  3. DEXAMETHASONE [Concomitant]
  4. POTASSIUM CHLORIDE CR [Concomitant]

REACTIONS (2)
  - Dyspnoea [None]
  - Chest discomfort [None]
